FAERS Safety Report 24664602 (Version 1)
Quarter: 2024Q4

REPORT INFORMATION
  Report Type: Spontaneous
  Country: SE (occurrence: SE)
  Receive Date: 20241126
  Receipt Date: 20241126
  Transmission Date: 20250114
  Serious: Yes (Disabling)
  Sender: BOEHRINGER INGELHEIM
  Company Number: None

PATIENT
  Age: 74 Year
  Sex: Female
  Weight: 75 kg

DRUGS (6)
  1. JARDIANCE [Suspect]
     Active Substance: EMPAGLIFLOZIN
     Indication: Type 2 diabetes mellitus
     Route: 048
     Dates: start: 20230410
  2. ELIQUIS [Concomitant]
     Active Substance: APIXABAN
     Indication: Product used for unknown indication
     Route: 048
     Dates: start: 20220426
  3. CANDESARSTAD [Concomitant]
     Indication: Product used for unknown indication
     Route: 048
     Dates: start: 20131112
  4. SPIRONOLACTONE [Concomitant]
     Active Substance: SPIRONOLACTONE
     Indication: Product used for unknown indication
     Route: 048
     Dates: start: 20220524
  5. Atorvastatin Viatris [Concomitant]
     Indication: Product used for unknown indication
     Route: 048
     Dates: start: 20220524
  6. BISOPROLOL STADA [Concomitant]
     Indication: Product used for unknown indication
     Route: 048
     Dates: start: 20131112

REACTIONS (1)
  - Female reproductive tract disorder [Not Recovered/Not Resolved]

NARRATIVE: CASE EVENT DATE: 20240410
